FAERS Safety Report 8797782 (Version 1)
Quarter: 2012Q4

REPORT INFORMATION
  Report Type: 
  Country: FI (occurrence: FI)
  Receive Date: 20120920
  Receipt Date: 20120920
  Transmission Date: 20130627
  Serious: Yes (Other)
  Sender: FDA-Public Use
  Company Number: FI-009507513-1209FIN006476

PATIENT
  Age: 31 Year
  Sex: Female

DRUGS (2)
  1. REBETOL [Suspect]
     Indication: HEPATITIS C
     Dosage: UNK, qw
     Dates: start: 201201
  2. PEGASYS [Suspect]
     Indication: HEPATITIS C
     Dosage: UNK, qw
     Dates: start: 201201

REACTIONS (3)
  - Multiple sclerosis [Not Recovered/Not Resolved]
  - Neutrophil count decreased [Unknown]
  - Psychiatric symptom [Unknown]
